FAERS Safety Report 8250429-9 (Version None)
Quarter: 2012Q2

REPORT INFORMATION
  Report Type: 
  Country: None (occurrence: None)
  Receive Date: 20120402
  Receipt Date: 20120320
  Transmission Date: 20120825
  Serious: No
  Sender: FDA-Public Use
  Company Number: KR-JNJFOC-20120310301

PATIENT
  Age: 71 Year
  Sex: Male

DRUGS (3)
  1. DURAGESIC-100 [Suspect]
     Indication: BACK PAIN
     Route: 062
     Dates: start: 20080101
  2. UNSPECIFIED NARCOTIC [Concomitant]
     Route: 065
  3. DURAGESIC-100 [Suspect]
     Indication: HYPOAESTHESIA
     Route: 062
     Dates: start: 20080101

REACTIONS (4)
  - DIZZINESS [None]
  - COLD SWEAT [None]
  - VOMITING [None]
  - INAPPROPRIATE SCHEDULE OF DRUG ADMINISTRATION [None]
